FAERS Safety Report 13986244 (Version 1)
Quarter: 2017Q3

REPORT INFORMATION
  Report Type: Spontaneous
  Country: US (occurrence: US)
  Receive Date: 20170919
  Receipt Date: 20170919
  Transmission Date: 20171128
  Serious: Yes (Life-Threatening, Hospitalization, Disabling)
  Sender: FDA-Public Use
  Company Number: None

PATIENT
  Age: 41 Year
  Sex: Male
  Weight: 94.5 kg

DRUGS (1)
  1. MEDROL [Suspect]
     Active Substance: METHYLPREDNISOLONE

REACTIONS (6)
  - Polyuria [None]
  - Visual impairment [None]
  - Type 2 diabetes mellitus [None]
  - Polydipsia [None]
  - Influenza [None]
  - Malaise [None]

NARRATIVE: CASE EVENT DATE: 20151225
